FAERS Safety Report 6178578-X (Version None)
Quarter: 2009Q2

REPORT INFORMATION
  Report Type: 
  Country: None (occurrence: None)
  Receive Date: 20090430
  Receipt Date: 20090421
  Transmission Date: 20091009
  Serious: Yes (Life-Threatening, Hospitalization)
  Sender: FDA-Public Use
  Company Number: CERZ-1000597

PATIENT
  Age: 4 Year
  Sex: Male
  Weight: 14.8 kg

DRUGS (2)
  1. CEREZYME [Suspect]
     Indication: GAUCHER'S DISEASE
     Dosage: 1800 U, Q2W, INTRAVENOUS
     Route: 042
     Dates: start: 20061026
  2. CEREZYME [Suspect]

REACTIONS (2)
  - EPILEPSY [None]
  - RESPIRATORY ARREST [None]
